FAERS Safety Report 6653841-4 (Version None)
Quarter: 2010Q1

REPORT INFORMATION
  Report Type: 
  Country: None (occurrence: None)
  Receive Date: 20100326
  Receipt Date: 20100319
  Transmission Date: 20100710
  Serious: Yes (Hospitalization)
  Sender: FDA-Public Use
  Company Number: B0641327A

PATIENT
  Age: 29 Year
  Sex: Female

DRUGS (4)
  1. ABACAVIR [Suspect]
     Indication: HIV INFECTION
     Dates: end: 20100301
  2. REYATAZ [Suspect]
     Indication: HIV INFECTION
     Dosage: 300MG PER DAY
     Dates: start: 20081101, end: 20100301
  3. RITONAVIR [Suspect]
     Indication: HIV INFECTION
     Dates: end: 20100301
  4. TENOFOVIR [Suspect]
     Indication: HIV INFECTION
     Dates: end: 20100301

REACTIONS (2)
  - BRAIN OEDEMA [None]
  - HEADACHE [None]
